FAERS Safety Report 9426935 (Version 1)
Quarter: 2013Q3

REPORT INFORMATION
  Report Type: Report from Study
  Country: CA (occurrence: CA)
  Receive Date: 20130730
  Receipt Date: 20130730
  Transmission Date: 20140515
  Serious: Yes (Other)
  Sender: FDA-Public Use
  Company Number: CA-JNJFOC-20130715988

PATIENT
  Age: 34 Year
  Sex: Female
  Weight: 88.4 kg

DRUGS (6)
  1. REMICADE [Suspect]
     Indication: CROHN^S DISEASE
     Dosage: 18TH INFUSION
     Route: 042
     Dates: start: 20130531
  2. REMICADE [Suspect]
     Indication: CROHN^S DISEASE
     Route: 042
     Dates: start: 20101009
  3. PREDNISONE [Concomitant]
     Dosage: PRN
     Route: 065
  4. DICLOFENAC [Concomitant]
     Route: 065
  5. HYDROCORTISONE [Concomitant]
     Route: 065
  6. OXYCONTIN [Concomitant]
     Dosage: PRN
     Route: 065

REACTIONS (2)
  - Road traffic accident [Not Recovered/Not Resolved]
  - Injury [Not Recovered/Not Resolved]
